FAERS Safety Report 20741459 (Version 1)
Quarter: 2022Q2

REPORT INFORMATION
  Report Type: Report from Study
  Country: US (occurrence: US)
  Receive Date: 20220422
  Receipt Date: 20220422
  Transmission Date: 20220721
  Serious: Yes (Other)
  Sender: FDA-Public Use
  Company Number: US-OTSUKA-US-2012-11718

PATIENT
  Age: 37 Year
  Sex: Male
  Weight: 73.92 kg

DRUGS (5)
  1. TOLVAPTAN [Suspect]
     Active Substance: TOLVAPTAN
     Indication: Congenital cystic kidney disease
     Dosage: 60 MG, QD
     Route: 048
     Dates: start: 20121006, end: 20121112
  2. TOLVAPTAN [Suspect]
     Active Substance: TOLVAPTAN
     Dosage: 30 MG, QD
     Route: 048
     Dates: start: 20121006, end: 20121112
  3. LISINOPRIL [Concomitant]
     Active Substance: LISINOPRIL
     Indication: Hypertension
     Dosage: 20 MG, QD
     Route: 048
     Dates: start: 2009
  4. TYLENOL [Concomitant]
     Active Substance: ACETAMINOPHEN
     Indication: Renal pain
     Dosage: 650 MG, PRN
     Route: 048
     Dates: start: 2004, end: 20121112
  5. ADDERALL [Concomitant]
     Active Substance: AMPHETAMINE ASPARTATE\AMPHETAMINE SULFATE\DEXTROAMPHETAMINE SACCHARATE\DEXTROAMPHETAMINE SULFATE
     Indication: Attention deficit hyperactivity disorder
     Dosage: 10 MG, BID
     Route: 048
     Dates: start: 20121231

REACTIONS (2)
  - Aspartate aminotransferase increased [Unknown]
  - Alanine aminotransferase increased [Unknown]

NARRATIVE: CASE EVENT DATE: 20121102
